FAERS Safety Report 25794895 (Version 1)
Quarter: 2025Q3

REPORT INFORMATION
  Report Type: Spontaneous
  Country: EU (occurrence: EU)
  Receive Date: 20250912
  Receipt Date: 20250912
  Transmission Date: 20251020
  Serious: Yes (Death, Hospitalization)
  Sender: ASTELLAS
  Company Number: EU-ASTELLAS-2025-AER-050221

PATIENT
  Age: 77 Year

DRUGS (2)
  1. GILTERITINIB [Suspect]
     Active Substance: GILTERITINIB
     Indication: Acute myeloid leukaemia recurrent
     Route: 065
  2. GILTERITINIB [Suspect]
     Active Substance: GILTERITINIB
     Indication: FLT3 gene mutation

REACTIONS (12)
  - Acute myeloid leukaemia [Fatal]
  - Acute myeloid leukaemia recurrent [Fatal]
  - General physical health deterioration [Fatal]
  - Bone marrow failure [Fatal]
  - Opportunistic infection [Fatal]
  - Sepsis [Fatal]
  - Leukaemic infiltration [Fatal]
  - Multiple organ dysfunction syndrome [Fatal]
  - Klebsiella infection [Fatal]
  - Bacterial infection [Fatal]
  - Klebsiella sepsis [Fatal]
  - Septic shock [Fatal]
